FAERS Safety Report 7988934-2 (Version None)
Quarter: 2011Q4

REPORT INFORMATION
  Report Type: 
  Country: None (occurrence: None)
  Receive Date: 20111007
  Receipt Date: 20110726
  Transmission Date: 20120403
  Serious: No
  Sender: FDA-Public Use
  Company Number: 2011HGS-002431

PATIENT
  Sex: Female

DRUGS (2)
  1. SOLU-MEDROL [Concomitant]
  2. BENLYSTA [Suspect]
     Dosage: INTRAVENOUS DRIP
     Route: 041
     Dates: start: 20110701

REACTIONS (1)
  - BLOOD PRESSURE INCREASED [None]
